FAERS Safety Report 14671422 (Version 2)
Quarter: 2018Q2

REPORT INFORMATION
  Report Type: Spontaneous
  Country: NL (occurrence: NL)
  Receive Date: 20180323
  Receipt Date: 20180403
  Transmission Date: 20180711
  Serious: Yes (Hospitalization)
  Sender: FDA-Public Use
  Company Number: NL-CONCORDIA PHARMACEUTICALS INC.-E2B_00010632

PATIENT
  Sex: Female

DRUGS (4)
  1. QUETIAPINE. [Concomitant]
     Active Substance: QUETIAPINE
     Indication: SLEEP DISORDER
     Dosage: IN THE EVENING
     Dates: start: 20170828
  2. TRANYLCYPROMINE [Suspect]
     Active Substance: TRANYLCYPROMINE
     Indication: DEPRESSION
     Dosage: 40 MG IN THE MORNING AND AFTERNOON
     Route: 048
     Dates: end: 20170201
  3. CLOBAZAN [Concomitant]
     Active Substance: CLOBAZAM
     Indication: SUPPORTIVE CARE
  4. OXYCODON [Interacting]
     Active Substance: OXYCODONE
     Indication: PAIN
     Dates: start: 20170828, end: 201709

REACTIONS (12)
  - Depression [Recovered/Resolved]
  - Headache [Recovered/Resolved]
  - Middle ear effusion [Not Recovered/Not Resolved]
  - Restlessness [Recovered/Resolved]
  - Ankle fracture [Recovered/Resolved]
  - Tremor [Recovered/Resolved]
  - Drug interaction [Recovered/Resolved]
  - Blood pressure fluctuation [Recovered/Resolved]
  - Nerve compression [Unknown]
  - Overdose [Recovered/Resolved]
  - Dry mouth [Not Recovered/Not Resolved]
  - Fall [Recovered/Resolved]

NARRATIVE: CASE EVENT DATE: 20170828
